FAERS Safety Report 20554188 (Version 2)
Quarter: 2025Q4

REPORT INFORMATION
  Report Type: Report from Study
  Country: EG (occurrence: EG)
  Receive Date: 20220304
  Receipt Date: 20251215
  Transmission Date: 20260117
  Serious: Yes (Other)
  Sender: NOVARTIS
  Company Number: EG-NOVARTISPH-NVSC2022EG048207

PATIENT
  Age: 51 Year
  Sex: Male

DRUGS (10)
  1. ENTRESTO [Suspect]
     Active Substance: SACUBITRIL\VALSARTAN
     Indication: Heart failure with reduced ejection fraction
     Dosage: 0.5 DF, BID (50MG)
     Route: 048
     Dates: start: 20210205, end: 20210405
  2. ENTRESTO [Suspect]
     Active Substance: SACUBITRIL\VALSARTAN
     Dosage: 0.5 DF, BID (100MG)
     Route: 048
     Dates: start: 20210405, end: 20220207
  3. ENTRESTO [Suspect]
     Active Substance: SACUBITRIL\VALSARTAN
     Dosage: 100 MG, BID
     Route: 048
     Dates: start: 20220208, end: 20220209
  4. ENTRESTO [Suspect]
     Active Substance: SACUBITRIL\VALSARTAN
     Dosage: 0.5 DF, BID (100MG)
     Route: 065
     Dates: start: 20220213
  5. ENTRESTO [Suspect]
     Active Substance: SACUBITRIL\VALSARTAN
     Dosage: 200 MG, QD
     Route: 048
  6. BISOPROLOL FUMARATE [Concomitant]
     Active Substance: BISOPROLOL FUMARATE
     Indication: Cardiac failure
     Dosage: 0.5 DF, BID (STARTED OVER 2 YEARS AGO)
     Route: 065
  7. CARBUTAMIDE [Concomitant]
     Active Substance: CARBUTAMIDE
     Indication: Diuretic therapy
     Dosage: 1 DF, QD
     Route: 065
     Dates: start: 202102
  8. WARFARIN SODIUM [Concomitant]
     Active Substance: WARFARIN SODIUM
     Indication: Anticoagulant therapy
     Dosage: 0.75 DF,QD (STARTED 2 YEARS AGO)
     Route: 065
     Dates: start: 1996
  9. EPLERENONE [Concomitant]
     Active Substance: EPLERENONE
     Indication: Hypertension
     Dosage: 1 DOSAGE FORM, QD
     Route: 065
     Dates: start: 202102
  10. ROSUVASTATIN [Concomitant]
     Active Substance: ROSUVASTATIN
     Indication: Blood cholesterol increased
     Dosage: 1 DOSAGE FORM, QD
     Route: 065
     Dates: start: 202102

REACTIONS (12)
  - Dyspnoea [Recovered/Resolved]
  - Sleep disorder [Recovered/Resolved]
  - Pain [Recovered/Resolved]
  - International normalised ratio decreased [Recovered/Resolved]
  - Heart rate increased [Recovered/Resolved]
  - Blood creatine decreased [Unknown]
  - Blood triglycerides increased [Unknown]
  - Prothrombin level decreased [Unknown]
  - Prothrombin time ratio decreased [Unknown]
  - Wrong technique in product usage process [Unknown]
  - Prescribed underdose [Unknown]
  - Off label use [Unknown]

NARRATIVE: CASE EVENT DATE: 20210205
